FAERS Safety Report 4371791-3 (Version None)
Quarter: 2004Q2

REPORT INFORMATION
  Report Type: 
  Country: None (occurrence: None)
  Receive Date: 20040604
  Receipt Date: 20040604
  Transmission Date: 20050107
  Serious: Yes (Life-Threatening, Hospitalization)
  Sender: FDA-Public Use
  Company Number: None

PATIENT
  Age: 70 Year
  Sex: Female
  Weight: 26.7622 kg

DRUGS (3)
  1. CETACAINE TOPICAL ANESTHETIC SPRAY [Suspect]
     Indication: LOCAL ANAESTHESIA
     Dosage: TOPICALLY TO THROAT PRE-PROCEDURE
     Route: 061
     Dates: start: 20040527
  2. VERSED [Concomitant]
  3. FENTANYL [Concomitant]

REACTIONS (4)
  - CYANOSIS [None]
  - OXYGEN SATURATION DECREASED [None]
  - PO2 INCREASED [None]
  - RESPIRATORY RATE DECREASED [None]
